FAERS Safety Report 9972940 (Version 2)
Quarter: 2014Q2

REPORT INFORMATION
  Report Type: Spontaneous
  Country: GB (occurrence: GB)
  Receive Date: 20140306
  Receipt Date: 20140423
  Transmission Date: 20141212
  Serious: Yes (Other)
  Sender: FDA-Public Use
  Company Number: GB-ALLERGAN-1403681US

PATIENT
  Age: 66 Year
  Sex: Male
  Weight: 73 kg

DRUGS (10)
  1. OZURDEX [Suspect]
     Indication: RETINOPATHY PROLIFERATIVE
     Dosage: 700 ?G, SINGLE
     Route: 031
     Dates: start: 20140110, end: 20140110
  2. BETNESOL [Concomitant]
     Route: 057
  3. CHLORAMPHENICOL [Concomitant]
     Route: 047
  4. CYCLOPENTOLATE [Concomitant]
     Route: 047
  5. DEXAMETASONE [Concomitant]
     Route: 047
  6. GENTAMICIN [Concomitant]
     Route: 057
  7. PHENYLEPHRINE [Concomitant]
     Route: 047
  8. SALBUTAMOL [Concomitant]
     Route: 055
  9. SERETIDE [Concomitant]
     Route: 055
  10. TROPICAMIDE [Concomitant]
     Route: 047

REACTIONS (5)
  - Vasodilatation [Not Recovered/Not Resolved]
  - Ocular vascular disorder [Not Recovered/Not Resolved]
  - Complication of device insertion [Unknown]
  - Retinal haemorrhage [Not Recovered/Not Resolved]
  - Off label use [Unknown]
